FAERS Safety Report 18895001 (Version 5)
Quarter: 2021Q2

REPORT INFORMATION
  Report Type: Spontaneous
  Country: JP (occurrence: JP)
  Receive Date: 20210216
  Receipt Date: 20210609
  Transmission Date: 20210717
  Serious: Yes (Death, Hospitalization, Other)
  Sender: FDA-Public Use
  Company Number: JP-009507513-2102JPN001346J

PATIENT
  Age: 75 Year
  Sex: Male

DRUGS (6)
  1. CARBOPLATIN. [Suspect]
     Active Substance: CARBOPLATIN
     Indication: LUNG ADENOCARCINOMA STAGE IV
     Dosage: AUC4, Q3W
     Route: 042
     Dates: start: 2019, end: 2019
  2. PEMETREXED DISODIUM [Suspect]
     Active Substance: PEMETREXED DISODIUM
     Indication: LUNG ADENOCARCINOMA STAGE IV
     Dosage: 350 MILLIGRAM/SQ. METER, Q3W
     Route: 042
     Dates: start: 2019, end: 2019
  3. KEYTRUDA [Suspect]
     Active Substance: PEMBROLIZUMAB
     Indication: LUNG ADENOCARCINOMA STAGE IV
     Dosage: 200 MILLIGRAM, Q3W
     Route: 041
     Dates: start: 2019, end: 2020
  4. KEYTRUDA [Suspect]
     Active Substance: PEMBROLIZUMAB
     Dosage: UNK, EVERY 6 WEEKS
     Route: 041
     Dates: start: 202011
  5. KEYTRUDA [Suspect]
     Active Substance: PEMBROLIZUMAB
     Dosage: 200 MILLIGRAM, Q3W
     Route: 041
     Dates: end: 202101
  6. CARBOPLATIN. [Suspect]
     Active Substance: CARBOPLATIN
     Dosage: AUC2.5, Q3W
     Route: 042
     Dates: start: 20210131, end: 20210131

REACTIONS (13)
  - Febrile neutropenia [Recovered/Resolved]
  - Gastrointestinal necrosis [Unknown]
  - C-reactive protein increased [Unknown]
  - Immune-mediated enterocolitis [Fatal]
  - Pleural effusion [Unknown]
  - Malignant neoplasm progression [Unknown]
  - Hypoalbuminaemia [Unknown]
  - Small intestinal perforation [Fatal]
  - Biliary tract disorder [Unknown]
  - Blood alkaline phosphatase increased [Not Recovered/Not Resolved]
  - Myelosuppression [Unknown]
  - Ascites [Unknown]
  - Rash [Unknown]

NARRATIVE: CASE EVENT DATE: 2019
